FAERS Safety Report 14922261 (Version 1)
Quarter: 2018Q2

REPORT INFORMATION
  Report Type: Spontaneous
  Country: US (occurrence: US)
  Receive Date: 20180502
  Receipt Date: 20180502
  Transmission Date: 20180711
  Serious: No
  Sender: FDA-Public Use
  Company Number: None

PATIENT
  Age: 19 Year
  Sex: Male
  Weight: 104.85 kg

DRUGS (2)
  1. DEXAMETHASONE. [Suspect]
     Active Substance: DEXAMETHASONE
     Indication: URTICARIA
     Dosage: ?          OTHER FREQUENCY:ONCE;?
     Route: 030
     Dates: start: 20180305, end: 20180305
  2. DIPHENHYDRAMINE ORAL [Concomitant]
     Dates: start: 20180305, end: 20180306

REACTIONS (4)
  - Vomiting [None]
  - Nausea [None]
  - Hiccups [None]
  - Abdominal pain upper [None]

NARRATIVE: CASE EVENT DATE: 20180305
